FAERS Safety Report 10160601 (Version 5)
Quarter: 2014Q2

REPORT INFORMATION
  Report Type: Spontaneous
  Country: JP (occurrence: JP)
  Receive Date: 20140508
  Receipt Date: 20140527
  Transmission Date: 20141212
  Serious: Yes (Death, Other)
  Sender: FDA-Public Use
  Company Number: JP-BRISTOL-MYERS SQUIBB COMPANY-20679981

PATIENT
  Age: 86 Year
  Sex: Female
  Weight: 40.2 kg

DRUGS (5)
  1. ELIQUIS [Suspect]
     Indication: ATRIAL FIBRILLATION
     Dosage: TABS
     Route: 048
     Dates: start: 20140410
  2. LOXOPROFEN [Suspect]
     Indication: ABDOMINAL PAIN UPPER
     Dates: start: 20140419
  3. BLOPRESS [Concomitant]
     Indication: HYPERTENSION
     Dosage: TABLET
     Route: 048
  4. RABEPRAZOLE SODIUM [Concomitant]
     Indication: GASTROOESOPHAGEAL REFLUX DISEASE
     Route: 048
  5. HEPARIN [Concomitant]
     Indication: ATRIAL FIBRILLATION
     Dosage: 1DF=200-300 LU/HR
     Route: 041
     Dates: start: 20140412, end: 20140416

REACTIONS (7)
  - Gastrointestinal haemorrhage [Fatal]
  - Urinary bladder haemorrhage [Fatal]
  - Cardiac failure [Fatal]
  - Liver disorder [Recovering/Resolving]
  - Renal disorder [Recovering/Resolving]
  - Cholecystitis acute [Unknown]
  - Oral candidiasis [Recovering/Resolving]
